FAERS Safety Report 5338293-9 (Version None)
Quarter: 2007Q2

REPORT INFORMATION
  Report Type: 
  Country: None (occurrence: None)
  Receive Date: 20070327
  Receipt Date: 20070103
  Transmission Date: 20071010
  Serious: No
  Sender: FDA-Public Use
  Company Number: 234633

PATIENT
  Age: 73 Year
  Sex: Male
  Weight: 83.9 kg

DRUGS (2)
  1. AVASTIN [Suspect]
     Indication: RENAL CELL CARCINOMA STAGE UNSPECIFIED
  2. TARCEVA [Suspect]
     Indication: RENAL CELL CARCINOMA STAGE UNSPECIFIED

REACTIONS (3)
  - DYSPNOEA [None]
  - MUSCULAR WEAKNESS [None]
  - WEIGHT DECREASED [None]
